FAERS Safety Report 6974019-0 (Version None)
Quarter: 2010Q3

REPORT INFORMATION
  Report Type: 
  Country: None (occurrence: None)
  Receive Date: 20100909
  Receipt Date: 20100830
  Transmission Date: 20110219
  Serious: Yes (Hospitalization)
  Sender: FDA-Public Use
  Company Number: TW-CEPHALON-2010004767

PATIENT
  Sex: Male

DRUGS (8)
  1. TREANDA [Suspect]
     Indication: NON-HODGKIN'S LYMPHOMA
     Route: 042
     Dates: start: 20100608, end: 20100609
  2. TREANDA [Suspect]
     Route: 042
     Dates: start: 20100629, end: 20100630
  3. CEFTRIZONE [Concomitant]
     Dates: start: 20100730, end: 20100809
  4. ACETAMINOPHEN [Concomitant]
     Dates: start: 20100731, end: 20100817
  5. GRANULOCYTE COLONY STIMULATING FACTOR [Concomitant]
     Dates: start: 20100804
  6. GANCICLOVIR [Concomitant]
     Dates: start: 20100804, end: 20100811
  7. ETOFENAMATE [Concomitant]
     Dates: start: 20100805
  8. MOXIFLOXACIN [Concomitant]
     Dates: start: 20100810, end: 20100820

REACTIONS (4)
  - CYTOMEGALOVIRUS TEST POSITIVE [None]
  - DIFFUSE LARGE B-CELL LYMPHOMA [None]
  - MALIGNANT NEOPLASM PROGRESSION [None]
  - URINARY TRACT INFECTION [None]
